FAERS Safety Report 25145552 (Version 5)
Quarter: 2025Q2

REPORT INFORMATION
  Report Type: Spontaneous
  Country: CO (occurrence: CO)
  Receive Date: 20250401
  Receipt Date: 20250604
  Transmission Date: 20250717
  Serious: No
  Sender: PFIZER
  Company Number: CO-PFIZER INC-PV202500034123

PATIENT
  Age: 12 Year
  Sex: Female
  Weight: 38.5 kg

DRUGS (1)
  1. GENOTROPIN [Suspect]
     Active Substance: SOMATROPIN
     Indication: Short stature
     Dosage: 1.6MG AND 1.8MG INTERDAY WITH DURATION 7 DAYS AND LEFTOVER DOSE OF 0.2 TO DAY 8
     Route: 058
     Dates: start: 2023, end: 202503

REACTIONS (3)
  - Off label use [Unknown]
  - Device defective [Recovered/Resolved]
  - Device mechanical issue [Recovered/Resolved]

NARRATIVE: CASE EVENT DATE: 20230101
